FAERS Safety Report 8837303 (Version 6)
Quarter: 2013Q3

REPORT INFORMATION
  Report Type: Report from Study
  Country: CA (occurrence: CA)
  Receive Date: 20121011
  Receipt Date: 20130724
  Transmission Date: 20140515
  Serious: Yes (Hospitalization, Other)
  Sender: FDA-Public Use
  Company Number: CA-ROCHE-1139254

PATIENT
  Age: 72 Year
  Sex: Male
  Weight: 83.9 kg

DRUGS (14)
  1. ACTEMRA [Suspect]
     Indication: RHEUMATOID ARTHRITIS
     Route: 042
     Dates: start: 20120831, end: 20120927
  2. ACTEMRA [Suspect]
     Route: 042
     Dates: start: 20120927, end: 20120927
  3. RITUXAN [Suspect]
     Indication: RHEUMATOID ARTHRITIS
     Dosage: LAST DOSE RECEIVED ON: 11/DEC/2012
     Route: 042
     Dates: start: 20121123
  4. RITUXAN [Suspect]
     Route: 042
     Dates: start: 20130515
  5. TYLENOL ARTHRITIS [Suspect]
     Indication: ARTHRALGIA
     Route: 065
  6. FOLATE [Concomitant]
     Route: 065
  7. SULFASALAZINE [Concomitant]
     Route: 065
  8. QUININE [Concomitant]
     Route: 065
  9. TYLENOL [Concomitant]
     Route: 065
  10. FOLIC ACID [Concomitant]
     Route: 065
  11. DIPHENHYDRAMINE HYDROCHLORIDE [Concomitant]
     Indication: PREMEDICATION
     Route: 042
     Dates: start: 20121123
  12. DIPHENHYDRAMINE HYDROCHLORIDE [Concomitant]
     Route: 048
     Dates: start: 20121211
  13. ACETAMINOPHEN [Concomitant]
     Indication: PREMEDICATION
     Route: 048
     Dates: start: 20121123
  14. METHYLPREDNISOLONE [Concomitant]
     Indication: PREMEDICATION
     Route: 042
     Dates: start: 20121123

REACTIONS (6)
  - Tachycardia [Unknown]
  - Palpitations [Recovering/Resolving]
  - Drug ineffective [Unknown]
  - Drug ineffective [Unknown]
  - Arthralgia [Not Recovered/Not Resolved]
  - Abdominal discomfort [Unknown]
